FAERS Safety Report 10375558 (Version 1)
Quarter: 2014Q3

REPORT INFORMATION
  Report Type: Spontaneous
  Country: CH (occurrence: CH)
  Receive Date: 20140811
  Receipt Date: 20140811
  Transmission Date: 20150326
  Serious: Yes (Hospitalization, Other)
  Sender: FDA-Public Use
  Company Number: CH-JNJFOC-20140718993

PATIENT
  Age: 22 Year
  Sex: Female

DRUGS (1)
  1. RISPERDAL [Suspect]
     Active Substance: RISPERIDONE
     Indication: SUICIDE ATTEMPT
     Dosage: 20 TABLETS (4MG EACH)
     Route: 048
     Dates: start: 20140531, end: 20140531

REACTIONS (13)
  - Musculoskeletal stiffness [Recovered/Resolved]
  - Vertigo [Unknown]
  - Tachycardia [Recovered/Resolved]
  - Suicide attempt [Unknown]
  - Depression [Unknown]
  - Dry mouth [Unknown]
  - Dysarthria [Recovered/Resolved]
  - Parkinsonism [Recovered/Resolved]
  - Headache [Unknown]
  - Intentional overdose [Recovered/Resolved]
  - Dysphagia [Recovered/Resolved]
  - Suicidal ideation [Unknown]
  - Dyskinesia [Recovered/Resolved]

NARRATIVE: CASE EVENT DATE: 20140531
